FAERS Safety Report 10833511 (Version 1)
Quarter: 2015Q1

REPORT INFORMATION
  Report Type: Report from Study
  Country: ZA (occurrence: ZA)
  Receive Date: 20150219
  Receipt Date: 20150219
  Transmission Date: 20150721
  Serious: Yes (Death, Hospitalization, Other)
  Sender: FDA-Public Use
  Company Number: ZA-BRISTOL-MYERS SQUIBB COMPANY-BMS-2015-009581

PATIENT
  Age: 49 Year
  Sex: Male
  Weight: 111 kg

DRUGS (2)
  1. ETOPOSIDE PHOSPHATE [Suspect]
     Active Substance: ETOPOSIDE PHOSPHATE
     Indication: KAPOSI^S SARCOMA
     Dosage: 50 MG, QD
     Route: 048
     Dates: start: 20140709, end: 20141026
  2. EFAVIRENZ, EMTRICITABINE, AND TENOFOVIR DISOPROXIL FUMARATE [Concomitant]
     Active Substance: EFAVIRENZ\EMTRICITABINE\TENOFOVIR DISOPROXIL FUMARATE
     Indication: HIV INFECTION
     Dosage: 1 DF, QD
     Route: 048
     Dates: start: 20140709, end: 20141204

REACTIONS (3)
  - Pleural effusion [Unknown]
  - Anaemia [Recovering/Resolving]
  - Kaposi^s sarcoma [Fatal]

NARRATIVE: CASE EVENT DATE: 20141126
